FAERS Safety Report 15629171 (Version 1)
Quarter: 2018Q4

REPORT INFORMATION
  Report Type: Spontaneous
  Country: None (occurrence: US)
  Receive Date: 20181116
  Receipt Date: 20181116
  Transmission Date: 20190205
  Serious: Yes (Other)
  Sender: FDA-Public Use
  Company Number: US-AMPHASTAR PHARMACEUTICALS, INC.-2058979

PATIENT
  Age: 81 Year
  Sex: Male
  Weight: 107.73 kg

DRUGS (7)
  1. CHLORTHALIDONE. [Concomitant]
     Active Substance: CHLORTHALIDONE
  2. ENOXAPARIN SODIUM. [Suspect]
     Active Substance: ENOXAPARIN SODIUM
     Dates: start: 20181015, end: 20181020
  3. METOPROLOL. [Concomitant]
     Active Substance: METOPROLOL
  4. LEVOTHYROXINE. [Concomitant]
     Active Substance: LEVOTHYROXINE
  5. BENAZEPRIL [Concomitant]
     Active Substance: BENAZEPRIL HYDROCHLORIDE
  6. AMLODIPINE [Concomitant]
     Active Substance: AMLODIPINE BESYLATE
  7. METFORMIN HYDROCHLORIDE. [Concomitant]
     Active Substance: METFORMIN HYDROCHLORIDE

REACTIONS (1)
  - Injury associated with device [Recovered/Resolved]
